FAERS Safety Report 14121381 (Version 1)
Quarter: 2017Q4

REPORT INFORMATION
  Report Type: Spontaneous
  Country: US (occurrence: US)
  Receive Date: 20171024
  Receipt Date: 20171024
  Transmission Date: 20180321
  Serious: No
  Sender: FDA-Public Use
  Company Number: US-MYLANLABS-2017M1057901

PATIENT
  Age: 33 Year
  Sex: Male

DRUGS (1)
  1. ONDANSETRON ORALLY DISINTEGRATING TABLETS, USP [Suspect]
     Active Substance: ONDANSETRON
     Indication: NAUSEA
     Dosage: UNK
     Dates: start: 20170912, end: 20170912

REACTIONS (2)
  - Glossodynia [Recovered/Resolved]
  - Oral pain [Not Recovered/Not Resolved]

NARRATIVE: CASE EVENT DATE: 20170912
